FAERS Safety Report 10451093 (Version 2)
Quarter: 2014Q3

REPORT INFORMATION
  Report Type: Spontaneous
  Country: US (occurrence: US)
  Receive Date: 20140912
  Receipt Date: 20140918
  Transmission Date: 20150326
  Serious: Yes (Other)
  Sender: FDA-Public Use
  Company Number: US-PFIZER INC-2014253024

PATIENT
  Age: 61 Year
  Sex: Female
  Weight: 65.76 kg

DRUGS (6)
  1. VESICARE [Concomitant]
     Active Substance: SOLIFENACIN SUCCINATE
     Indication: URINARY TRACT DISORDER
     Dosage: 10 MG, UNK
  2. TRAZODONE [Concomitant]
     Active Substance: TRAZODONE HYDROCHLORIDE
     Dosage: 100 MG, UNK
  3. VENLAFAXINE HCL [Suspect]
     Active Substance: VENLAFAXINE HYDROCHLORIDE
     Dosage: UNK
  4. EFFEXOR XR [Suspect]
     Active Substance: VENLAFAXINE HYDROCHLORIDE
     Indication: DEPRESSION
     Dosage: 300 MG, 1X/DAY (BY TAKING TWO CAPSULES OF 150MG OF VENLAFAXINE)
     Route: 048
     Dates: end: 2011
  5. EFFEXOR XR [Suspect]
     Active Substance: VENLAFAXINE HYDROCHLORIDE
     Dosage: 300 MG, 1X/DAY (BY TAKING TWO CAPSULES OF 150MG OF VENLAFAXINE)
     Route: 048
     Dates: start: 2011, end: 2014
  6. EFFEXOR XR [Suspect]
     Active Substance: VENLAFAXINE HYDROCHLORIDE
     Dosage: 300 MG, 1X/DAY (BY TAKING TWO CAPSULES OF 150MG OF VENLAFAXINE)
     Route: 048
     Dates: start: 20140908

REACTIONS (13)
  - Vulvovaginal burning sensation [Recovering/Resolving]
  - Constipation [Recovering/Resolving]
  - Hot flush [Recovering/Resolving]
  - Blood cholesterol increased [Recovering/Resolving]
  - Pain [Unknown]
  - Personality change [Unknown]
  - Multiple sclerosis [Recovering/Resolving]
  - Weight increased [Recovering/Resolving]
  - Osteoporosis [Recovering/Resolving]
  - Anger [Recovering/Resolving]
  - Drug ineffective [Recovering/Resolving]
  - Vulvovaginal pain [Unknown]
  - Gait disturbance [Recovering/Resolving]

NARRATIVE: CASE EVENT DATE: 2014
